FAERS Safety Report 13454334 (Version 1)
Quarter: 2017Q2

REPORT INFORMATION
  Report Type: Not Available
  Country: DE (occurrence: DE)
  Receive Date: 20170418
  Receipt Date: 20170418
  Transmission Date: 20170830
  Serious: Yes (Other)
  Sender: FDA-Public Use
  Company Number: DE-ANIPHARMA-2017-DE-000005

PATIENT
  Age: 54 Year
  Sex: Female

DRUGS (6)
  1. QUETIAPINE XR [Suspect]
     Active Substance: QUETIAPINE
     Dosage: 600 MG
     Route: 065
  2. SERTRALINE [Concomitant]
     Active Substance: SERTRALINE HYDROCHLORIDE
     Dosage: 50 MG
  3. PREGABALIN. [Concomitant]
     Active Substance: PREGABALIN
     Dosage: 200 MG
  4. ARIPIPRAZOLE. [Concomitant]
     Active Substance: ARIPIPRAZOLE
     Dosage: 5 MG
  5. QUETIAPINE IMMEDIATE-RELEASE [Suspect]
     Active Substance: QUETIAPINE
     Dosage: 50 MG
  6. VALPROIC ACID (NON-SPECIFIC) [Suspect]
     Active Substance: VALPROIC ACID
     Dosage: 600 MG TWICE DAILY
     Route: 065
     Dates: start: 2014

REACTIONS (4)
  - Dizziness [Recovered/Resolved]
  - Muscle rigidity [Recovered/Resolved]
  - Tremor [Recovered/Resolved]
  - Drug interaction [Unknown]
